FAERS Safety Report 4312995-5 (Version None)
Quarter: 2004Q1

REPORT INFORMATION
  Report Type: 
  Country: None (occurrence: None)
  Receive Date: 20040303
  Receipt Date: 20040223
  Transmission Date: 20041129
  Serious: Yes (Death, Hospitalization)
  Sender: FDA-Public Use
  Company Number: THQ2003A01343

PATIENT
  Age: 79 Year
  Sex: Female

DRUGS (13)
  1. PIOGLITAZONE HCL [Suspect]
     Indication: DIABETES MELLITUS
     Dosage: 30 MG (1 D) PER ORAL
     Route: 048
     Dates: start: 20030520, end: 20031030
  2. VIOXX [Concomitant]
  3. NITROPATCH (GLYCERYL TRINITRATE) [Concomitant]
  4. QUINAPRIL HCL [Concomitant]
  5. NORVASC [Concomitant]
  6. DIAMICRON (GLICLAZIDE) [Concomitant]
  7. APO-TRIAZIDE (DYAZIDE) [Concomitant]
  8. GLUCONORM (GLIBENCLAMIDE) [Concomitant]
  9. FLOMAX [Concomitant]
  10. SIMVASTATIN [Concomitant]
  11. CARDIAZEM (DILTIAZEM) [Concomitant]
  12. CIMETIDINE [Concomitant]
  13. LORAZEPAM [Concomitant]

REACTIONS (7)
  - BLOOD CREATININE INCREASED [None]
  - CIRCULATORY COLLAPSE [None]
  - COMA [None]
  - FLUID RETENTION [None]
  - JOINT SWELLING [None]
  - MYOCARDIAL INFARCTION [None]
  - WEIGHT INCREASED [None]
